FAERS Safety Report 8238638-6 (Version None)
Quarter: 2012Q1

REPORT INFORMATION
  Report Type: 
  Country: None (occurrence: None)
  Receive Date: 20120309
  Receipt Date: 20100217
  Transmission Date: 20120608
  Serious: No
  Sender: FDA-Public Use
  Company Number: PHHY2010US07424

PATIENT
  Age: 33 Year
  Sex: Female
  Weight: 81.6 kg

DRUGS (2)
  1. SIMVASTATIN [Concomitant]
  2. EXTAVIA [Suspect]
     Indication: MULTIPLE SCLEROSIS
     Dosage: UNK, SUBCUTANEOUS
     Route: 058
     Dates: start: 20100203, end: 20100205

REACTIONS (1)
  - PALPITATIONS [None]
